FAERS Safety Report 4361544-4 (Version None)
Quarter: 2004Q2

REPORT INFORMATION
  Report Type: 
  Country: None (occurrence: None)
  Receive Date: 20040521
  Receipt Date: 20040327
  Transmission Date: 20050107
  Serious: No
  Sender: FDA-Public Use
  Company Number: US-GLAXOSMITHKLINE-A0508929A

PATIENT
  Sex: Male

DRUGS (1)
  1. ZYBAN [Suspect]
     Dates: start: 20040301, end: 20040301

REACTIONS (2)
  - ARTHRALGIA [None]
  - URTICARIA [None]
